FAERS Safety Report 23866233 (Version 3)
Quarter: 2024Q3

REPORT INFORMATION
  Report Type: Report from Study
  Country: US (occurrence: US)
  Receive Date: 20240517
  Receipt Date: 20240909
  Transmission Date: 20241016
  Serious: Yes (Other)
  Sender: JOHNSON AND JOHNSON
  Company Number: US-JNJFOC-20240312911

PATIENT
  Age: 85 Year
  Sex: Male
  Weight: 74.91 kg

DRUGS (5)
  1. MACITENTAN [Suspect]
     Active Substance: MACITENTAN
     Indication: Pulmonary arterial hypertension
     Route: 048
     Dates: start: 20240219
  2. FUROSEMIDE [Concomitant]
     Active Substance: FUROSEMIDE
  3. AZELASTINE [Concomitant]
     Active Substance: AZELASTINE\AZELASTINE HYDROCHLORIDE
  4. SILDENAFIL [Concomitant]
     Active Substance: SILDENAFIL
  5. DUTASTERIDE [Concomitant]
     Active Substance: DUTASTERIDE

REACTIONS (2)
  - Dyspnoea [Not Recovered/Not Resolved]
  - Weight decreased [Unknown]

NARRATIVE: CASE EVENT DATE: 20240227
